FAERS Safety Report 20322754 (Version 1)
Quarter: 2022Q1

REPORT INFORMATION
  Report Type: Spontaneous
  Country: CA (occurrence: CA)
  Receive Date: 20220111
  Receipt Date: 20220111
  Transmission Date: 20220423
  Serious: Yes (Death)
  Sender: FDA-Public Use
  Company Number: CA-TEVA-2022-CA-1997114

PATIENT
  Age: 80 Year
  Sex: Female

DRUGS (5)
  1. FENTANYL [Suspect]
     Active Substance: FENTANYL
     Indication: Arthralgia
     Route: 062
  2. FENTANYL [Suspect]
     Active Substance: FENTANYL
     Route: 062
  3. FENTANYL [Suspect]
     Active Substance: FENTANYL
     Route: 062
  4. HYDROMORPHONE [Concomitant]
     Active Substance: HYDROMORPHONE
  5. MORPHINE [Concomitant]
     Active Substance: MORPHINE

REACTIONS (8)
  - Accidental death [Fatal]
  - Accidental overdose [Fatal]
  - Anxiety [Fatal]
  - Hypotension [Fatal]
  - Prescribed overdose [Fatal]
  - Respiratory acidosis [Fatal]
  - Reversal of opiate activity [Fatal]
  - Somnolence [Fatal]
